FAERS Safety Report 12592434 (Version 3)
Quarter: 2016Q3

REPORT INFORMATION
  Report Type: Spontaneous
  Country: US (occurrence: US)
  Receive Date: 20160726
  Receipt Date: 20160929
  Transmission Date: 20161109
  Serious: Yes (Disabling)
  Sender: FDA-Public Use
  Company Number: US-PFIZER INC-2016332009

PATIENT
  Sex: Male

DRUGS (1)
  1. XALKORI [Suspect]
     Active Substance: CRIZOTINIB
     Indication: NON-SMALL CELL LUNG CANCER
     Dosage: UNK UNK, 1X/DAY
     Route: 048
     Dates: start: 201509, end: 201606

REACTIONS (5)
  - Diarrhoea [Recovering/Resolving]
  - Oedema [Recovering/Resolving]
  - Dropped head syndrome [Recovering/Resolving]
  - Bradycardia [Unknown]
  - Muscular weakness [Unknown]

NARRATIVE: CASE EVENT DATE: 201509
